FAERS Safety Report 4377476-1 (Version None)
Quarter: 2004Q2

REPORT INFORMATION
  Report Type: 
  Country: None (occurrence: None)
  Receive Date: 20040615
  Receipt Date: 20040531
  Transmission Date: 20050107
  Serious: Yes (Hospitalization)
  Sender: FDA-Public Use
  Company Number: ES-AMGEN-US079787

PATIENT
  Sex: Female

DRUGS (4)
  1. ENBREL [Suspect]
     Indication: RHEUMATOID ARTHRITIS
     Route: 058
     Dates: start: 20040124, end: 20040308
  2. CELEBREX [Concomitant]
     Dates: start: 19950101
  3. INDOMETHACIN [Concomitant]
  4. METHYLPREDNISOLONE [Concomitant]
     Dates: start: 19950101

REACTIONS (1)
  - PRURIGO [None]
